FAERS Safety Report 23889166 (Version 1)
Quarter: 2024Q2

REPORT INFORMATION
  Report Type: Spontaneous
  Country: US (occurrence: None)
  Receive Date: 20240523
  Receipt Date: 20240523
  Transmission Date: 20240716
  Serious: Yes (Other)
  Sender: FDA-Public Use
  Company Number: None

PATIENT
  Sex: Female

DRUGS (2)
  1. LOREAL PARIS REVITALIFT ANTI WRINKLE FIRMING MOISTURIZER SPF 25 [Suspect]
     Active Substance: AVOBENZONE\OCTISALATE\OCTOCRYLENE
     Indication: Premature ageing
     Route: 061
     Dates: start: 20240425, end: 20240520
  2. PREDNISONE [Concomitant]
     Active Substance: PREDNISONE

REACTIONS (4)
  - Hypersensitivity [None]
  - Documented hypersensitivity to administered product [None]
  - Facial spasm [None]
  - Movement disorder [None]
